FAERS Safety Report 8042571-2 (Version None)
Quarter: 2012Q1

REPORT INFORMATION
  Report Type: 
  Country: None (occurrence: None)
  Receive Date: 20120112
  Receipt Date: 20120103
  Transmission Date: 20120608
  Serious: Yes (Hospitalization)
  Sender: FDA-Public Use
  Company Number: DE-PFIZER INC-2011276548

PATIENT
  Age: 54 Year
  Sex: Male
  Weight: 90 kg

DRUGS (4)
  1. DEXAMETHASONE TAB [Suspect]
     Indication: GLIOBLASTOMA
     Dosage: 4 MG, UNK
  2. DEXAMETHASONE TAB [Suspect]
     Indication: OEDEMA
  3. IRINOTECAN HCL [Suspect]
     Indication: BRAIN NEOPLASM
     Dosage: 340 MG, UNK
     Dates: start: 20111018, end: 20111108
  4. TEMSIROLIMUS [Suspect]
     Indication: BRAIN NEOPLASM
     Dosage: 30 MG, UNK
     Dates: start: 20111025, end: 20111108

REACTIONS (1)
  - IMPAIRED HEALING [None]
